FAERS Safety Report 12501542 (Version 1)
Quarter: 2016Q2

REPORT INFORMATION
  Report Type: Spontaneous
  Country: US (occurrence: US)
  Receive Date: 20160627
  Receipt Date: 20160627
  Transmission Date: 20160815
  Serious: No
  Sender: FDA-Public Use
  Company Number: US-DSJP-DSU-2015-123097

PATIENT
  Sex: Female

DRUGS (2)
  1. VITAMIN B12 [Suspect]
     Active Substance: CYANOCOBALAMIN
     Indication: PRODUCT USED FOR UNKNOWN INDICATION
     Dosage: UNK
  2. WELCHOL [Suspect]
     Active Substance: COLESEVELAM HYDROCHLORIDE
     Indication: COLITIS
     Dosage: UNK
     Route: 048

REACTIONS (7)
  - Myalgia [Unknown]
  - Pain [Unknown]
  - Malaise [Unknown]
  - Neuropathy peripheral [Unknown]
  - Off label use [Unknown]
  - Arthralgia [Unknown]
  - Influenza [Unknown]
